FAERS Safety Report 4701622-0 (Version None)
Quarter: 2005Q2

REPORT INFORMATION
  Report Type: 
  Country: None (occurrence: None)
  Receive Date: 20050627
  Receipt Date: 20050614
  Transmission Date: 20051028
  Serious: Yes (Death, Disabling)
  Sender: FDA-Public Use
  Company Number: 2005088168

PATIENT
  Sex: Male

DRUGS (2)
  1. ATARAX [Suspect]
     Indication: EXCITABILITY
     Dates: start: 20050217
  2. HALOPERIDOL [Suspect]
     Indication: ILL-DEFINED DISORDER
     Dates: start: 20050217

REACTIONS (4)
  - BEDRIDDEN [None]
  - DEPRESSED LEVEL OF CONSCIOUSNESS [None]
  - DYSPNOEA [None]
  - MOVEMENT DISORDER [None]
